FAERS Safety Report 4628108-6 (Version None)
Quarter: 2005Q2

REPORT INFORMATION
  Report Type: 
  Country: None (occurrence: None)
  Receive Date: 20050406
  Receipt Date: 20050405
  Transmission Date: 20051028
  Serious: Yes (Hospitalization)
  Sender: FDA-Public Use
  Company Number: 129

PATIENT
  Age: 66 Year
  Weight: 62 kg

DRUGS (2)
  1. MELPHALAN [Suspect]
     Indication: MULTIPLE MYELOMA
     Dosage: 200MG PER DAY
     Route: 042
     Dates: start: 20041116
  2. THALIDOMIDE [Suspect]
     Indication: MULTIPLE MYELOMA
     Dosage: 50MG PER DAY
     Route: 048
     Dates: start: 20041101, end: 20041108

REACTIONS (6)
  - BACTERAEMIA [None]
  - DEHYDRATION [None]
  - DIARRHOEA [None]
  - HYPOTENSION [None]
  - MUCOSAL INFLAMMATION [None]
  - PLEURAL EFFUSION [None]
